FAERS Safety Report 21576751 (Version 3)
Quarter: 2023Q1

REPORT INFORMATION
  Report Type: Spontaneous
  Country: US (occurrence: US)
  Receive Date: 20221110
  Receipt Date: 20230105
  Transmission Date: 20230418
  Serious: No
  Sender: FDA-Public Use
  Company Number: US-LUPIN PHARMACEUTICALS INC.-2022-13173

PATIENT

DRUGS (1)
  1. TRAMADOL HYDROCHLORIDE EXTENDED-RELEASE TABLETS [Suspect]
     Active Substance: TRAMADOL HYDROCHLORIDE
     Indication: Back pain
     Dosage: 200 MILLIGRAM, QD
     Route: 065
     Dates: start: 20221013

REACTIONS (2)
  - Therapeutic product effect incomplete [Unknown]
  - Product substitution issue [Unknown]
